FAERS Safety Report 19106468 (Version 2)
Quarter: 2021Q2

REPORT INFORMATION
  Report Type: Other
  Country: CZ (occurrence: CZ)
  Receive Date: 20210408
  Receipt Date: 20210420
  Transmission Date: 20210717
  Serious: Yes (Hospitalization)
  Sender: FDA-Public Use
  Company Number: CZ-ROCHE-2801262

PATIENT
  Age: 73 Year
  Sex: Female

DRUGS (12)
  1. ENTRECTINIB [Suspect]
     Active Substance: ENTRECTINIB
     Indication: THYROID CANCER
     Route: 048
     Dates: start: 20210306
  2. PRESTARIUM NEO FORTE [Concomitant]
     Active Substance: PERINDOPRIL ARGININE
  3. ATORIS [Concomitant]
     Active Substance: ATORVASTATIN CALCIUM
  4. GODASAL [Concomitant]
     Active Substance: ASPIRIN\GLYCINE
  5. AGEN [Concomitant]
     Active Substance: AMLODIPINE BESYLATE
  6. LETROX [Concomitant]
     Active Substance: LEVOTHYROXINE SODIUM
  7. NOLPAZA [Concomitant]
     Active Substance: PANTOPRAZOLE SODIUM
  8. SECTRAL [Concomitant]
     Active Substance: ACEBUTOLOL HYDROCHLORIDE
  9. VEROSPIRON [Concomitant]
     Active Substance: SPIRONOLACTONE
  10. FURON [Concomitant]
     Active Substance: FUROSEMIDE
  11. KALNORMIN [Concomitant]
     Active Substance: POTASSIUM CHLORIDE
  12. MILURIT [Concomitant]
     Active Substance: ALLOPURINOL

REACTIONS (5)
  - Rash [Unknown]
  - Dizziness [Unknown]
  - Asthenia [Unknown]
  - Renal failure [Not Recovered/Not Resolved]
  - Oedema peripheral [Unknown]

NARRATIVE: CASE EVENT DATE: 20210316
